FAERS Safety Report 17769939 (Version 1)
Quarter: 2020Q2

REPORT INFORMATION
  Report Type: Spontaneous
  Country: US (occurrence: US)
  Receive Date: 20200511
  Receipt Date: 20200511
  Transmission Date: 20200714
  Serious: No
  Sender: FDA-Public Use
  Company Number: None

PATIENT
  Age: 37 Year
  Sex: Female
  Weight: 72.57 kg

DRUGS (1)
  1. PARAGARD T 380A [Suspect]
     Active Substance: COPPER
     Dates: start: 20161229, end: 20200506

REACTIONS (3)
  - Pregnancy with contraceptive device [None]
  - Device breakage [None]
  - Abortion induced [None]

NARRATIVE: CASE EVENT DATE: 20200506
